FAERS Safety Report 8608681-3 (Version None)
Quarter: 2012Q3

REPORT INFORMATION
  Report Type: 
  Country: None (occurrence: None)
  Receive Date: 20120821
  Receipt Date: 20120813
  Transmission Date: 20120928
  Serious: Yes (Death)
  Sender: FDA-Public Use
  Company Number: AU-CELGENEUS-008-20785-12080229

PATIENT
  Sex: Female

DRUGS (3)
  1. THALIDOMIDE [Suspect]
     Dosage: 200 MILLIGRAM
     Route: 048
     Dates: start: 20120101
  2. THALIDOMIDE [Suspect]
     Route: 048
     Dates: start: 20060901, end: 20070101
  3. THALIDOMIDE [Suspect]
     Dosage: 150 MILLIGRAM
     Route: 048
     Dates: start: 20090101

REACTIONS (4)
  - BONE MARROW FAILURE [None]
  - CONSTIPATION [None]
  - PERIPHERAL SENSORY NEUROPATHY [None]
  - ANAEMIA [None]
